FAERS Safety Report 11176465 (Version 1)
Quarter: 2015Q2

REPORT INFORMATION
  Report Type: Spontaneous
  Country: US (occurrence: US)
  Receive Date: 20150610
  Receipt Date: 20150610
  Transmission Date: 20150821
  Serious: No
  Sender: FDA-Public Use
  Company Number: US-TEVA-554043USA

PATIENT
  Age: 52 Year
  Sex: Female

DRUGS (1)
  1. TEMOZOLOMIDE. [Suspect]
     Active Substance: TEMOZOLOMIDE
     Indication: PRODUCT USED FOR UNKNOWN INDICATION
     Dosage: 2 CAPSULES (200MG) PLUS 1 (140MG) TOTAL 340MG/DAY FOR 5 DAYS EVERY 3 WEEKS
     Route: 048
     Dates: start: 20150310

REACTIONS (3)
  - Dysgeusia [Unknown]
  - Nausea [Unknown]
  - Skin odour abnormal [Unknown]
